FAERS Safety Report 24205858 (Version 1)
Quarter: 2024Q3

REPORT INFORMATION
  Report Type: Spontaneous
  Country: US (occurrence: None)
  Receive Date: 20240813
  Receipt Date: 20240813
  Transmission Date: 20241016
  Serious: No
  Sender: Public
  Company Number: None

PATIENT
  Age: 61 Year
  Sex: Female

DRUGS (1)
  1. QUTENZA [Suspect]
     Active Substance: CAPSAICIN
     Indication: Diabetic neuropathy
     Dosage: 4 PATCHES 90 DAYS TOPICAL
     Route: 061
     Dates: start: 20240605, end: 20240605

REACTIONS (1)
  - Blister [None]

NARRATIVE: CASE EVENT DATE: 20240605
